FAERS Safety Report 12126907 (Version 1)
Quarter: 2016Q1

REPORT INFORMATION
  Report Type: Report from Study
  Country: PK (occurrence: PK)
  Receive Date: 20160229
  Receipt Date: 20160229
  Transmission Date: 20160526
  Serious: Yes (Death)
  Sender: FDA-Public Use
  Company Number: PK-INCYTE CORPORATION-2016IN001007

PATIENT
  Age: 67 Year
  Sex: Female

DRUGS (1)
  1. JAKAFI [Suspect]
     Active Substance: RUXOLITINIB
     Indication: PRIMARY MYELOFIBROSIS
     Dosage: 20 MG, BID
     Route: 048
     Dates: start: 20151111

REACTIONS (1)
  - Primary myelofibrosis [Fatal]

NARRATIVE: CASE EVENT DATE: 20160212
